FAERS Safety Report 21024656 (Version 1)
Quarter: 2022Q2

REPORT INFORMATION
  Report Type: Spontaneous
  Country: US (occurrence: US)
  Receive Date: 20220629
  Receipt Date: 20220629
  Transmission Date: 20220721
  Serious: No
  Sender: FDA-Public Use
  Company Number: US-GLAXOSMITHKLINE-USCH2022022053

PATIENT
  Sex: Female

DRUGS (1)
  1. EQUATE NICOTINE [Suspect]
     Active Substance: NICOTINE
     Indication: Smoking cessation therapy
     Dosage: UNK
     Dates: start: 2022

REACTIONS (5)
  - Application site pain [Unknown]
  - Application site paraesthesia [Unknown]
  - Application site swelling [Unknown]
  - Application site reaction [Unknown]
  - Application site burn [Unknown]

NARRATIVE: CASE EVENT DATE: 20220101
